FAERS Safety Report 10682098 (Version 1)
Quarter: 2014Q4

REPORT INFORMATION
  Report Type: Spontaneous
  Country: IT (occurrence: None)
  Receive Date: 20141224
  Receipt Date: 20141224
  Transmission Date: 20150529
  Serious: Yes (Hospitalization)
  Sender: FDA-Public Use
  Company Number: FK201406353

PATIENT
  Age: 84 Year
  Sex: Male

DRUGS (4)
  1. CLARITHROMYCIN. [Suspect]
     Active Substance: CLARITHROMYCIN
     Indication: PYREXIA
     Dates: start: 20141130, end: 20141202
  2. CEFTRIAXON (MANUFACTURER UNKNOWN) (CEFTRIAXON-DINATRIUM) (CEFTRIAXON-DINATRIUM) [Suspect]
     Active Substance: CEFTRIAXONE
     Indication: GASTROENTERITIS
     Dates: start: 20141202, end: 20141202
  3. PARACETAMOL [Suspect]
     Active Substance: ACETAMINOPHEN
     Indication: DYSPNOEA
     Dates: start: 20141202, end: 20141202
  4. FUROSEMIDE (MANUFACTURER UNKNOWN) (FUROSEMIDE) (FUROSEMIDE) [Suspect]
     Active Substance: FUROSEMIDE
     Indication: PRODUCT USED FOR UNKNOWN INDICATION
     Dates: start: 20141202, end: 20141202

REACTIONS (12)
  - Blood creatine increased [None]
  - Vasculitis [None]
  - Obesity [None]
  - Hypertension [None]
  - Arteriosclerosis [None]
  - Gastroenteritis [None]
  - Tongue oedema [None]
  - Dyspnoea [None]
  - Gastrointestinal disorder [None]
  - Coronary artery stenosis [None]
  - Hypercreatinaemia [None]
  - Benign prostatic hyperplasia [None]

NARRATIVE: CASE EVENT DATE: 20141202
